FAERS Safety Report 8357934-5 (Version None)
Quarter: 2012Q2

REPORT INFORMATION
  Report Type: 
  Country: None (occurrence: None)
  Receive Date: 20120514
  Receipt Date: 20120509
  Transmission Date: 20120825
  Serious: Yes (Other)
  Sender: FDA-Public Use
  Company Number: US-BAYER-2012-045172

PATIENT
  Age: 50 Year
  Sex: Female

DRUGS (4)
  1. AVELOX [Suspect]
     Indication: PNEUMONIA
     Dosage: 400 MG, QD
     Route: 048
     Dates: start: 20120426, end: 20120503
  2. LEVOTHYROXINE SODIUM [Concomitant]
  3. CODEINE [Concomitant]
  4. AZITHROMYCIN [Concomitant]
     Dosage: 5 DAY Z-PACK

REACTIONS (6)
  - UNEVALUABLE EVENT [None]
  - ABASIA [None]
  - OEDEMA PERIPHERAL [None]
  - PAIN IN EXTREMITY [None]
  - JOINT SWELLING [None]
  - ARTHRALGIA [None]
